FAERS Safety Report 10865752 (Version 1)
Quarter: 2015Q1

REPORT INFORMATION
  Report Type: Spontaneous
  Country: US (occurrence: US)
  Receive Date: 20150224
  Receipt Date: 20150224
  Transmission Date: 20150721
  Serious: No
  Sender: FDA-Public Use
  Company Number: US-GLAXOSMITHKLINE-US2015005981

PATIENT
  Sex: Male

DRUGS (8)
  1. BREO ELLIPTA [Suspect]
     Active Substance: FLUTICASONE FUROATE\VILANTEROL TRIFENATATE
     Indication: EMPHYSEMA
     Route: 055
     Dates: start: 201412
  2. ENALAPRIL [Concomitant]
     Active Substance: ENALAPRIL
  3. BREO ELLIPTA [Suspect]
     Active Substance: FLUTICASONE FUROATE\VILANTEROL TRIFENATATE
     Route: 055
     Dates: start: 201412
  4. AMLODIPINE [Concomitant]
     Active Substance: AMLODIPINE BESYLATE
  5. ANORO ELLIPTA [Suspect]
     Active Substance: UMECLIDINIUM BROMIDE\VILANTEROL TRIFENATATE
     Route: 055
     Dates: start: 201501
  6. ANORO ELLIPTA [Suspect]
     Active Substance: UMECLIDINIUM BROMIDE\VILANTEROL TRIFENATATE
  7. SIMVASTATIN. [Concomitant]
     Active Substance: SIMVASTATIN
  8. ANORO ELLIPTA [Suspect]
     Active Substance: UMECLIDINIUM BROMIDE\VILANTEROL TRIFENATATE
     Indication: EMPHYSEMA
     Dosage: 1 PUFF(S), PRN
     Route: 055
     Dates: start: 201501

REACTIONS (5)
  - Intentional product use issue [Unknown]
  - Treatment noncompliance [Unknown]
  - Therapeutic response unexpected [Unknown]
  - Dyspnoea [Unknown]
  - Product use issue [Unknown]
